FAERS Safety Report 11250488 (Version 1)
Quarter: 2015Q3

REPORT INFORMATION
  Report Type: Spontaneous
  Country: US (occurrence: US)
  Receive Date: 20150708
  Receipt Date: 20150708
  Transmission Date: 20151125
  Serious: Yes (Life-Threatening, Other)
  Sender: FDA-Public Use
  Company Number: US-ELI_LILLY_AND_COMPANY-US201101001328

PATIENT
  Age: 79 Year
  Sex: Female

DRUGS (17)
  1. DEXAMETHASONE. [Concomitant]
     Active Substance: DEXAMETHASONE
     Dosage: 4 MG, 4/D
  2. BENADRYL [Concomitant]
     Active Substance: DIPHENHYDRAMINE HYDROCHLORIDE
     Dosage: 25 MG, UNK
  3. SUCRAFATE [Concomitant]
     Active Substance: SUCRALFATE
     Dosage: 1 MG, 4/D
  4. OMEPRAZOLE. [Concomitant]
     Active Substance: OMEPRAZOLE
     Dosage: 20 MG, DAILY (1/D)
  5. LIPITOR [Concomitant]
     Active Substance: ATORVASTATIN CALCIUM
     Dosage: 40 MG, DAILY (1/D)
  6. ALBUTEROL. [Concomitant]
     Active Substance: ALBUTEROL
     Dosage: UNK, EVERY 4 HRS
  7. ALIMTA [Suspect]
     Active Substance: PEMETREXED DISODIUM
     Dosage: 780 MG, UNK
     Dates: start: 20101227
  8. VITAMIN B12 [Concomitant]
     Active Substance: CYANOCOBALAMIN
     Dosage: 1000 MG, UNK
  9. FOLIC ACID. [Concomitant]
     Active Substance: FOLIC ACID
     Dosage: 1 MG, DAILY (1/D)
  10. LEVAQUIN [Concomitant]
     Active Substance: LEVOFLOXACIN
     Dosage: 500 MG, DAILY (1/D)
  11. PACLITAXEL. [Concomitant]
     Active Substance: PACLITAXEL
  12. KLOR-CON [Concomitant]
     Active Substance: POTASSIUM CHLORIDE
  13. MEGACE ES [Concomitant]
     Active Substance: MEGESTROL ACETATE
  14. MUCINEX [Concomitant]
     Active Substance: GUAIFENESIN
     Dosage: 1 D/F, 2/D
  15. LORAZEPAM. [Concomitant]
     Active Substance: LORAZEPAM
     Dosage: 1 MG, AS NEEDED
  16. AVASTIN [Concomitant]
     Active Substance: BEVACIZUMAB
  17. CARBOPLATIN. [Concomitant]
     Active Substance: CARBOPLATIN

REACTIONS (5)
  - Septic shock [Unknown]
  - Confusional state [Unknown]
  - Anxiety [Unknown]
  - Diabetes mellitus [Unknown]
  - White blood cell count decreased [Recovering/Resolving]

NARRATIVE: CASE EVENT DATE: 20110102
